FAERS Safety Report 4440363-4 (Version None)
Quarter: 2004Q3

REPORT INFORMATION
  Report Type: 
  Country: None (occurrence: None)
  Receive Date: 20040831
  Receipt Date: 20040517
  Transmission Date: 20050211
  Serious: No
  Sender: FDA-Public Use
  Company Number: 701988

PATIENT
  Age: 71 Year
  Sex: Female

DRUGS (1)
  1. AMEVIVE [Suspect]
     Indication: PSORIASIS
     Dosage: 15 MG QW IM
     Route: 030

REACTIONS (4)
  - DIZZINESS [None]
  - LOOSE STOOLS [None]
  - MOUTH ULCERATION [None]
  - NAUSEA [None]
